FAERS Safety Report 4889967-5 (Version None)
Quarter: 2006Q1

REPORT INFORMATION
  Report Type: 
  Country: None (occurrence: None)
  Receive Date: 20060124
  Receipt Date: 20051022
  Transmission Date: 20060701
  Serious: Yes (Other)
  Sender: FDA-Public Use
  Company Number: US-AVENTIS-200518407US

PATIENT
  Sex: Female
  Weight: 49.9 kg

DRUGS (7)
  1. LANTUS [Suspect]
     Indication: DIABETES MELLITUS NON-INSULIN-DEPENDENT
     Dosage: DOSE UNIT: UNITS
     Route: 058
     Dates: start: 20050922, end: 20051024
  2. OPTICLIK (INSULIN INJECTION PEN) [Suspect]
     Indication: DIABETES MELLITUS NON-INSULIN-DEPENDENT
     Dates: start: 20050929, end: 20051024
  3. ALTACE [Concomitant]
     Dates: start: 20031101, end: 20051001
  4. ALTACE [Concomitant]
     Dates: start: 20051002, end: 20051013
  5. ALTACE [Concomitant]
     Dates: start: 20051014, end: 20051021
  6. ALTACE [Concomitant]
     Dates: start: 20051022
  7. SYNTHROID [Concomitant]

REACTIONS (3)
  - BLOOD GLUCOSE INCREASED [None]
  - BLOOD PRESSURE INCREASED [None]
  - HEART RATE INCREASED [None]
